FAERS Safety Report 10228960 (Version 3)
Quarter: 2015Q1

REPORT INFORMATION
  Report Type: Report from Study
  Country: ES (occurrence: ES)
  Receive Date: 20140610
  Receipt Date: 20150313
  Transmission Date: 20150720
  Serious: Yes (Other)
  Sender: FDA-Public Use
  Company Number: ES-GLAXOSMITHKLINE-B0884161A

PATIENT
  Age: 40 Year
  Sex: Female
  Weight: 69 kg

DRUGS (6)
  1. DABRAFENIB [Suspect]
     Active Substance: DABRAFENIB
     Indication: METASTATIC MALIGNANT MELANOMA
     Dosage: 150 MG BID FROM 27 FEBRUARY 2013 - 25 NOVEMBER 2013.100 MG BID FROM 26 NOVEMBER 2013
     Route: 048
     Dates: start: 20130227
  2. LORAZEPAM. [Concomitant]
     Active Substance: LORAZEPAM
     Indication: DEPRESSION
     Route: 048
     Dates: start: 20130205
  3. PARACETAMOL [Concomitant]
     Active Substance: ACETAMINOPHEN
     Indication: PANNICULITIS
     Dosage: 1 G, UNK
     Route: 048
     Dates: start: 20131023
  4. LORMETAZEPAM [Concomitant]
     Active Substance: LORMETAZEPAM
     Indication: DEPRESSION
     Route: 048
     Dates: start: 20130205
  5. IBUPROFEN. [Concomitant]
     Active Substance: IBUPROFEN
     Indication: HYPERKERATOSIS
     Route: 048
     Dates: start: 20130205
  6. DEPRAX [Concomitant]
     Active Substance: TRAZODONE HYDROCHLORIDE
     Indication: DEPRESSION
     Route: 048
     Dates: start: 20130205

REACTIONS (19)
  - Panniculitis [Recovered/Resolved]
  - Metrorrhagia [Recovered/Resolved]
  - Asthenia [Not Recovered/Not Resolved]
  - Blood phosphorus decreased [Recovered/Resolved]
  - Dysgeusia [Recovered/Resolved]
  - Panniculitis [Recovered/Resolved]
  - Dermatitis [Recovering/Resolving]
  - Pyrexia [Recovered/Resolved]
  - Palmoplantar keratoderma [Not Recovered/Not Resolved]
  - Pyrexia [Recovered/Resolved]
  - Pyrexia [Recovered/Resolved]
  - Headache [Recovered/Resolved]
  - Inflammation [Recovered/Resolved]
  - Alopecia [Recovering/Resolving]
  - Arthralgia [Recovered/Resolved]
  - Pyrexia [Recovered/Resolved]
  - Pyrexia [Recovered/Resolved]
  - Palmar-plantar erythrodysaesthesia syndrome [Recovered/Resolved]
  - Nausea [Recovered/Resolved]

NARRATIVE: CASE EVENT DATE: 20130228
